FAERS Safety Report 16458951 (Version 1)
Quarter: 2019Q2

REPORT INFORMATION
  Report Type: Spontaneous
  Country: US (occurrence: US)
  Receive Date: 20190620
  Receipt Date: 20190620
  Transmission Date: 20190711
  Serious: No
  Sender: FDA-Public Use
  Company Number: US-THERAPEUTICSMD-2019TMD00889

PATIENT
  Age: 59 Year
  Sex: Female
  Weight: 52.61 kg

DRUGS (4)
  1. IMVEXXY [Suspect]
     Active Substance: ESTRADIOL
     Dosage: 10 ?G, 2X/WEEK BEFORE BEDTIME
     Route: 067
     Dates: start: 20190415
  2. IMVEXXY [Suspect]
     Active Substance: ESTRADIOL
     Indication: DYSPAREUNIA
     Dosage: 10 ?G, 1X/DAY BEFORE BEDTIME
     Route: 067
     Dates: start: 20190401, end: 20190414
  3. METHYLCELLULOSE [Concomitant]
     Active Substance: METHYLCELLULOSES
     Dosage: UNK, 1X/DAY
  4. ESTRADIOL (MANUFACTURER: BARR) [Concomitant]
     Dosage: 1 MG, 1X/DAY
     Route: 048

REACTIONS (4)
  - Constipation [Not Recovered/Not Resolved]
  - Abdominal discomfort [Not Recovered/Not Resolved]
  - Infrequent bowel movements [Not Recovered/Not Resolved]
  - Faecal volume decreased [Not Recovered/Not Resolved]

NARRATIVE: CASE EVENT DATE: 201904
